FAERS Safety Report 14031231 (Version 1)
Quarter: 2017Q4

REPORT INFORMATION
  Report Type: Spontaneous
  Country: US (occurrence: US)
  Receive Date: 20171003
  Receipt Date: 20171003
  Transmission Date: 20180321
  Serious: No
  Sender: FDA-Public Use
  Company Number: US-ELI_LILLY_AND_COMPANY-US201709011820

PATIENT
  Age: 69 Year
  Sex: Female

DRUGS (3)
  1. TRULICITY [Suspect]
     Active Substance: DULAGLUTIDE
     Dosage: 0.75 MG, UNKNOWN
     Route: 065
  2. TRULICITY [Suspect]
     Active Substance: DULAGLUTIDE
     Indication: PRODUCT USED FOR UNKNOWN INDICATION
     Dosage: 1.5 MG, UNKNOWN
     Route: 065
     Dates: start: 201704
  3. TRULICITY [Suspect]
     Active Substance: DULAGLUTIDE
     Dosage: 1.5 MG, UNKNOWN
     Route: 065

REACTIONS (21)
  - Skin irritation [Unknown]
  - Scratch [Unknown]
  - Blood glucose increased [Unknown]
  - Rash [Unknown]
  - Urticaria [Unknown]
  - Motion sickness [Unknown]
  - Urticaria [Recovered/Resolved]
  - Dyspnoea [Unknown]
  - Abdominal discomfort [Unknown]
  - Hunger [Unknown]
  - Pruritus [Unknown]
  - Drug dose omission [Unknown]
  - Injection site pain [Unknown]
  - Dry skin [Unknown]
  - Psoriasis [Unknown]
  - Rash [Recovered/Resolved]
  - Headache [Unknown]
  - Visual impairment [Unknown]
  - Formication [Unknown]
  - Vomiting [Unknown]
  - Dyspnoea [Recovered/Resolved]

NARRATIVE: CASE EVENT DATE: 201704
